FAERS Safety Report 16159082 (Version 2)
Quarter: 2019Q2

REPORT INFORMATION
  Report Type: Report from Study
  Country: EG (occurrence: EG)
  Receive Date: 20190404
  Receipt Date: 20190517
  Transmission Date: 20190711
  Serious: Yes (Death, Hospitalization)
  Sender: FDA-Public Use
  Company Number: EG-SEATTLE GENETICS-2018SGN02045

PATIENT
  Age: 49 Year
  Sex: Male

DRUGS (2)
  1. BRENTUXIMAB VEDOTIN-MPI [Suspect]
     Active Substance: BRENTUXIMAB VEDOTIN
     Indication: HODGKIN^S DISEASE
     Dosage: UNK, Q21D
     Route: 042
     Dates: start: 20180809, end: 20190106
  2. PANADOL [Concomitant]
     Active Substance: ACETAMINOPHEN
     Dosage: UNK
     Route: 065

REACTIONS (12)
  - Death [Fatal]
  - Platelet count decreased [Unknown]
  - Pneumonitis [Unknown]
  - Dyspnoea [Unknown]
  - Haemoglobin decreased [Not Recovered/Not Resolved]
  - Jaundice [Unknown]
  - White blood cell count decreased [Recovering/Resolving]
  - Chills [Unknown]
  - Hypotension [Unknown]
  - Abdominal pain [Unknown]
  - Blood albumin decreased [Unknown]
  - Fatigue [Unknown]

NARRATIVE: CASE EVENT DATE: 20190401
